FAERS Safety Report 7073455-4 (Version None)
Quarter: 2010Q4

REPORT INFORMATION
  Report Type: 
  Country: None (occurrence: None)
  Receive Date: 20101029
  Receipt Date: 20100722
  Transmission Date: 20110411
  Serious: No
  Sender: FDA-Public Use
  Company Number: A0866318A

PATIENT
  Age: 56 Year
  Sex: Male
  Weight: 65.3 kg

DRUGS (2)
  1. ADVAIR DISKUS 100/50 [Suspect]
     Dosage: 1PUFF TWICE PER DAY
     Route: 055
     Dates: start: 20100617, end: 20100618
  2. NO CONCURRENT MEDICATION [Concomitant]

REACTIONS (1)
  - NON-CARDIAC CHEST PAIN [None]
